FAERS Safety Report 6031765-3 (Version None)
Quarter: 2009Q1

REPORT INFORMATION
  Report Type: 
  Country: None (occurrence: None)
  Receive Date: 20090108
  Receipt Date: 20090106
  Transmission Date: 20090719
  Serious: Yes (Life-Threatening, Hospitalization)
  Sender: FDA-Public Use
  Company Number: CA-MERCK-0810CAN00143

PATIENT
  Age: 55 Year
  Sex: Male

DRUGS (22)
  1. MAXALT [Suspect]
     Indication: MIGRAINE
     Route: 048
     Dates: start: 20080909, end: 20080911
  2. TRIMEBUTINE [Concomitant]
     Route: 065
  3. ACTONEL [Concomitant]
     Route: 065
  4. ASPIRIN [Concomitant]
     Route: 065
  5. ALLOPURINOL [Concomitant]
     Route: 065
  6. NEXIUM [Concomitant]
     Route: 065
  7. LORATADINE [Concomitant]
     Route: 065
  8. BETAINE HYDROCHLORIDE [Concomitant]
     Route: 065
  9. [THERAPY UNSPECIFIED] [Concomitant]
     Route: 065
  10. [THERAPY UNSPECIFIED] [Concomitant]
     Route: 065
  11. CHOLECALCIFEROL [Concomitant]
     Route: 065
  12. VITAMIN E [Concomitant]
     Route: 065
  13. ASCORBIC ACID [Concomitant]
     Route: 065
  14. DIMETHYL SULFONE AND GLUCOSAMINE [Concomitant]
     Route: 065
  15. NIACIN [Concomitant]
     Route: 065
  16. ADVIL EXTRA STRENGTH [Concomitant]
     Indication: MIGRAINE
     Route: 065
  17. ELOCON [Concomitant]
     Indication: RASH
     Route: 065
  18. PENNSAID [Concomitant]
     Route: 065
  19. [THERAPY UNSPECIFIED] [Concomitant]
     Route: 065
  20. APPLE CIDER VINEGAR [Concomitant]
     Route: 065
  21. IMODIUM [Concomitant]
     Route: 065
  22. IMODIUM [Concomitant]
     Route: 065

REACTIONS (1)
  - ISCHAEMIC STROKE [None]
